FAERS Safety Report 4399239-3 (Version None)
Quarter: 2004Q3

REPORT INFORMATION
  Report Type: 
  Country: None (occurrence: None)
  Receive Date: 20040712
  Receipt Date: 20040625
  Transmission Date: 20050211
  Serious: Yes (Other)
  Sender: FDA-Public Use
  Company Number: 701790

PATIENT
  Age: 65 Year
  Sex: Male

DRUGS (2)
  1. AMEVIVE [Suspect]
     Indication: PSORIASIS
     Dates: start: 20030522, end: 20030806
  2. AMEVIVE [Suspect]
     Indication: PSORIASIS
     Dates: start: 20031231, end: 20040317

REACTIONS (7)
  - ACTINIC KERATOSIS [None]
  - CONDITION AGGRAVATED [None]
  - IMMUNE SYSTEM DISORDER [None]
  - PEMPHIGOID [None]
  - PRURITUS [None]
  - PSORIASIS [None]
  - RASH ERYTHEMATOUS [None]
